FAERS Safety Report 10583516 (Version 3)
Quarter: 2015Q2

REPORT INFORMATION
  Report Type: Spontaneous
  Country: US (occurrence: None)
  Receive Date: 20141112
  Receipt Date: 20150407
  Transmission Date: 20150821
  Serious: Yes (Hospitalization)
  Sender: FDA-Public Use
  Company Number: 201411026

PATIENT
  Age: 63 Year
  Sex: Male
  Weight: 113.63 kg

DRUGS (16)
  1. ANDROGEL [Suspect]
     Active Substance: TESTOSTERONE
     Dosage: 3-5  PUMPS PER DAY
     Dates: start: 201308, end: 201402
  2. FLONASE [Concomitant]
     Active Substance: FLUTICASONE PROPIONATE
  3. AMBIEN [Concomitant]
     Active Substance: ZOLPIDEM TARTRATE
  4. BUPROPION [Concomitant]
     Active Substance: BUPROPION
  5. GREEN TEA EXTRACT (NULL) [Concomitant]
  6. MELOXICAM. [Concomitant]
     Active Substance: MELOXICAM
  7. PANTOPRAZOLE [Concomitant]
     Active Substance: PANTOPRAZOLE SODIUM
  8. LEVITRA [Concomitant]
     Active Substance: VARDENAFIL HYDROCHLORIDE TRIHYDRATE
  9. TESTOSTERONE ENANTATE [Suspect]
     Active Substance: TESTOSTERONE
     Dates: start: 201102, end: 201107
  10. VITAMIN C [Concomitant]
     Active Substance: ASCORBIC ACID
  11. ASPIRIN (ACETYLSALICYLIC ACID) [Concomitant]
     Active Substance: ASPIRIN
  12. VITAMIN D (ERGOCALCIFEROL) [Concomitant]
     Active Substance: ERGOCALCIFEROL
  13. GLUCOSAMINE [Concomitant]
     Active Substance: GLUCOSAMINE
  14. VITAMINS NOS [Concomitant]
     Active Substance: VITAMINS
  15. TESTIM [Suspect]
     Active Substance: TESTOSTERONE
     Indication: BLOOD TESTOSTERONE DECREASED
     Route: 062
     Dates: start: 201002, end: 201101
  16. DIOVAN [Concomitant]
     Active Substance: VALSARTAN

REACTIONS (4)
  - Emotional disorder [None]
  - Cerebrovascular accident [None]
  - Injury [None]
  - Economic problem [None]

NARRATIVE: CASE EVENT DATE: 20140218
